FAERS Safety Report 5897562-4 (Version None)
Quarter: 2008Q3

REPORT INFORMATION
  Report Type: 
  Country: None (occurrence: None)
  Receive Date: 20080829
  Receipt Date: 20070727
  Transmission Date: 20090109
  Serious: Yes (Hospitalization)
  Sender: FDA-Public Use
  Company Number: 016183

PATIENT
  Age: 35 Year
  Sex: Female
  Weight: 97.1 kg

DRUGS (1)
  1. PLAN B [Suspect]
     Indication: CONTRACEPTION
     Dosage: 1 TABLET, Q12HR, ORAL
     Route: 048
     Dates: start: 20070608, end: 20070609

REACTIONS (3)
  - ECTOPIC PREGNANCY [None]
  - PELVIC PAIN [None]
  - UTERINE HAEMORRHAGE [None]
